FAERS Safety Report 9717395 (Version 1)
Quarter: 2013Q4

REPORT INFORMATION
  Report Type: Spontaneous
  Country: US (occurrence: US)
  Receive Date: 20131127
  Receipt Date: 20131127
  Transmission Date: 20140711
  Serious: No
  Sender: FDA-Public Use
  Company Number: US-GILEAD-2008-0019592

PATIENT
  Sex: Female
  Weight: 58.51 kg

DRUGS (15)
  1. LETAIRIS [Suspect]
     Indication: PULMONARY ARTERIAL HYPERTENSION
     Route: 048
     Dates: start: 20081214
  2. TOPROL [Concomitant]
  3. COUMADIN [Concomitant]
  4. OXYGEN [Concomitant]
  5. LASIX [Concomitant]
  6. ATACAND [Concomitant]
  7. NAMENDA [Concomitant]
  8. ARICEPT [Concomitant]
  9. ADVAIR [Concomitant]
  10. LIPITOR [Concomitant]
  11. LEXAPRO [Concomitant]
  12. MULTIVITAMIN [Concomitant]
  13. FISH OIL [Concomitant]
  14. POTASSIUM CHLORIDE [Concomitant]
  15. CALCIUM [Concomitant]

REACTIONS (1)
  - Hypotension [Unknown]
